FAERS Safety Report 4590071-4 (Version None)
Quarter: 2005Q1

REPORT INFORMATION
  Report Type: 
  Country: None (occurrence: None)
  Receive Date: 20050217
  Receipt Date: 20050204
  Transmission Date: 20050727
  Serious: Yes (Hospitalization)
  Sender: FDA-Public Use
  Company Number: 2005025850

PATIENT
  Sex: Male

DRUGS (2)
  1. VIAGRA [Suspect]
     Indication: ILL-DEFINED DISORDER
     Dosage: AS NECESSARY, ORAL
     Route: 048
  2. ALL OTHER NON-THERAPEUTIC PRODUCTS [Suspect]
     Indication: ERECTILE DYSFUNCTION
     Dates: start: 20040201, end: 20040101

REACTIONS (3)
  - ERECTILE DYSFUNCTION [None]
  - PHARMACEUTICAL PRODUCT COUNTERFEIT [None]
  - PROSTATE CANCER [None]
